FAERS Safety Report 10051058 (Version 2)
Quarter: 2014Q2

REPORT INFORMATION
  Report Type: Spontaneous
  Country: US (occurrence: US)
  Receive Date: 20140401
  Receipt Date: 20140401
  Transmission Date: 20141212
  Serious: No
  Sender: FDA-Public Use
  Company Number: US-ASTRAZENECA-2012SE79995

PATIENT
  Age: 77 Year
  Sex: Female
  Weight: 86.6 kg

DRUGS (5)
  1. NEXIUM [Suspect]
     Route: 048
  2. TOPROL XL [Suspect]
     Route: 048
  3. LIPITOR [Concomitant]
     Indication: BLOOD CHOLESTEROL INCREASED
  4. BENICAR [Concomitant]
     Indication: HYPERTENSION
  5. ESTROGEN [Concomitant]
     Indication: HYSTERECTOMY

REACTIONS (4)
  - Feeling abnormal [Unknown]
  - Malaise [Unknown]
  - Dyspnoea [Unknown]
  - Intentional product misuse [Unknown]
